FAERS Safety Report 21178563 (Version 2)
Quarter: 2022Q3

REPORT INFORMATION
  Report Type: Spontaneous
  Country: US (occurrence: US)
  Receive Date: 20220805
  Receipt Date: 20220824
  Transmission Date: 20221027
  Serious: No
  Sender: FDA-Public Use
  Company Number: US-VIIV HEALTHCARE LIMITED-US2022AMR114846

PATIENT
  Sex: Male

DRUGS (3)
  1. CABOTEGRAVIR [Suspect]
     Active Substance: CABOTEGRAVIR
     Indication: Product used for unknown indication
     Dosage: UNK, UNK, Z, 600 MG/3 ML EVERY TWO MONTHS
     Route: 030
     Dates: start: 20220303
  2. CABOTEGRAVIR [Suspect]
     Active Substance: CABOTEGRAVIR
     Dosage: UNK, UNK, Z, 600 MG/3 ML EVERY TWO MONTHS
     Route: 030
     Dates: start: 20220331
  3. CABOTEGRAVIR [Suspect]
     Active Substance: CABOTEGRAVIR
     Dosage: UNK, UNK, Z, 600 MG/3 ML EVERY TWO MONTHS
     Route: 030
     Dates: start: 20220607

REACTIONS (4)
  - Hepatic enzyme increased [Recovering/Resolving]
  - Chromaturia [Unknown]
  - Hepatic steatosis [Unknown]
  - Cholelithiasis [Unknown]

NARRATIVE: CASE EVENT DATE: 20220101
